FAERS Safety Report 13978732 (Version 1)
Quarter: 2017Q3

REPORT INFORMATION
  Report Type: Spontaneous
  Country: FR (occurrence: FR)
  Receive Date: 20170915
  Receipt Date: 20170915
  Transmission Date: 20171128
  Serious: Yes (Other)
  Sender: FDA-Public Use
  Company Number: FR-MERCK KGAA-2026477

PATIENT
  Sex: Female

DRUGS (1)
  1. NOVOTHYROX [Suspect]
     Active Substance: LEVOTHYROXINE SODIUM
     Indication: PRODUCT USED FOR UNKNOWN INDICATION
     Dates: start: 201706

REACTIONS (18)
  - Depression [Unknown]
  - Pallor [Unknown]
  - Dizziness [Unknown]
  - Insomnia [Unknown]
  - Maternal exposure during pregnancy [Unknown]
  - Weight increased [Unknown]
  - Fatigue [Unknown]
  - Hypokinesia [Unknown]
  - Tremor [Unknown]
  - Temperature intolerance [Unknown]
  - Oedema [Unknown]
  - Hyperhidrosis [Unknown]
  - Muscle spasms [Unknown]
  - Disturbance in attention [Unknown]
  - Complication of pregnancy [Unknown]
  - Peripheral vascular disorder [Unknown]
  - C-reactive protein abnormal [Unknown]
  - Liver disorder [Unknown]
